FAERS Safety Report 5220952-X (Version None)
Quarter: 2007Q1

REPORT INFORMATION
  Report Type: 
  Country: None (occurrence: None)
  Receive Date: 20070123
  Receipt Date: 20070109
  Transmission Date: 20070707
  Serious: Yes (Hospitalization)
  Sender: FDA-Public Use
  Company Number: 2007RR-05218

PATIENT
  Age: 31 Year
  Sex: Male

DRUGS (1)
  1. ISOTRETINOIN [Suspect]
     Indication: ACNE CONGLOBATA
     Dosage: 40 MG, QD, ORAL
     Route: 048

REACTIONS (1)
  - PLEURITIC PAIN [None]
